FAERS Safety Report 23040461 (Version 1)
Quarter: 2023Q4

REPORT INFORMATION
  Report Type: Spontaneous
  Country: US (occurrence: US)
  Receive Date: 20231006
  Receipt Date: 20231006
  Transmission Date: 20240110
  Serious: Yes (Life-Threatening, Other)
  Sender: FDA-Public Use
  Company Number: US-BIOMARINAP-US-2023-153037

PATIENT

DRUGS (2)
  1. PALYNZIQ [Suspect]
     Active Substance: PEGVALIASE-PQPZ
     Indication: Phenylketonuria
     Dosage: 60 MILLIGRAM, QD
     Route: 058
  2. PALYNZIQ [Suspect]
     Active Substance: PEGVALIASE-PQPZ
     Dosage: UNK
     Route: 058
     Dates: start: 2019

REACTIONS (14)
  - Anaphylactic reaction [Unknown]
  - Serum sickness-like reaction [Unknown]
  - Therapy non-responder [Unknown]
  - Amino acid level decreased [Unknown]
  - Weight decreased [Unknown]
  - Urticaria [Unknown]
  - Hot flush [Unknown]
  - Feeling hot [Unknown]
  - Brain fog [Unknown]
  - Swelling face [Unknown]
  - Swollen tongue [Unknown]
  - Swelling [Unknown]
  - Seasonal allergy [Unknown]
  - Rash [Unknown]

NARRATIVE: CASE EVENT DATE: 20230701
